FAERS Safety Report 9333121 (Version 6)
Quarter: 2014Q1

REPORT INFORMATION
  Report Type: Spontaneous
  Country: US (occurrence: US)
  Receive Date: 20130606
  Receipt Date: 20140120
  Transmission Date: 20141002
  Serious: Yes (Hospitalization, Other)
  Sender: FDA-Public Use
  Company Number: US-009507513-1305USA017099

PATIENT
  Sex: Female
  Weight: 70.3 kg

DRUGS (9)
  1. FOSAMAX [Suspect]
     Indication: OSTEOPOROSIS
     Dosage: UNK
     Route: 048
     Dates: start: 2006, end: 2011
  2. FOSAMAX PLUS D [Suspect]
     Dosage: UNK
     Route: 048
     Dates: start: 2006, end: 2011
  3. ALENDRONATE SODIUM [Suspect]
     Dosage: UNK
     Dates: start: 2006, end: 2011
  4. BONIVA [Suspect]
     Indication: OSTEOPOROSIS
     Dosage: 35 MG QM
     Route: 048
     Dates: start: 2006, end: 2011
  5. BONIVA [Suspect]
     Indication: OSTEOPENIA
  6. ACTONEL [Suspect]
     Indication: PREMATURE MENOPAUSE
     Dosage: 35 MG, UNK
     Dates: start: 2006, end: 2011
  7. ACTONEL [Suspect]
     Indication: OSTEOPOROSIS
  8. ACTONEL [Suspect]
     Indication: OSTEOPENIA
  9. SYNTHROID [Concomitant]
     Indication: HYPOTHYROIDISM

REACTIONS (17)
  - Open reduction of fracture [Unknown]
  - Femoral neck fracture [Unknown]
  - Fracture nonunion [Unknown]
  - Internal fixation of fracture [Unknown]
  - Transfusion [Unknown]
  - Femur fracture [Unknown]
  - Dental caries [Unknown]
  - Hypertension [Unknown]
  - Hypercholesterolaemia [Unknown]
  - Hypoaesthesia [Unknown]
  - Tendon injury [Unknown]
  - Bone fragmentation [Unknown]
  - Joint crepitation [Unknown]
  - Body height decreased [Unknown]
  - Spinal compression fracture [Unknown]
  - Limb deformity [Unknown]
  - Gait disturbance [Unknown]
